FAERS Safety Report 4691170-9 (Version None)
Quarter: 2005Q2

REPORT INFORMATION
  Report Type: 
  Country: None (occurrence: None)
  Receive Date: 20050610
  Receipt Date: 20050527
  Transmission Date: 20051028
  Serious: Yes (Life-Threatening, Other)
  Sender: FDA-Public Use
  Company Number: 2005-0008337

PATIENT
  Age: 31 Year
  Sex: Male

DRUGS (2)
  1. TRUVADA [Suspect]
     Indication: PROPHYLAXIS AGAINST HIV INFECTION
     Dosage: 1 IN 1 D, ORAL
     Route: 048
     Dates: start: 20050505, end: 20050506
  2. LEXIVA [Concomitant]

REACTIONS (6)
  - DEHYDRATION [None]
  - DRUG HYPERSENSITIVITY [None]
  - DYSPHAGIA [None]
  - NAUSEA [None]
  - SENSATION OF FOREIGN BODY [None]
  - VOMITING [None]
